FAERS Safety Report 8092773-4 (Version None)
Quarter: 2012Q1

REPORT INFORMATION
  Report Type: 
  Country: None (occurrence: None)
  Receive Date: 20120128
  Receipt Date: 20110811
  Transmission Date: 20120608
  Serious: Yes (Other)
  Sender: FDA-Public Use
  Company Number: US-ABBOTT-11P-163-0846043-00

PATIENT
  Age: 27 Year
  Sex: Female

DRUGS (1)
  1. HUMIRA [Suspect]
     Indication: CROHN'S DISEASE
     Route: 058
     Dates: start: 20110118, end: 20110501

REACTIONS (5)
  - ARTHRALGIA [None]
  - DIARRHOEA [None]
  - DRUG INEFFECTIVE [None]
  - PROCTOCOLECTOMY [None]
  - ABDOMINAL PAIN [None]
